FAERS Safety Report 6026413-2 (Version None)
Quarter: 2009Q1

REPORT INFORMATION
  Report Type: 
  Country: None (occurrence: None)
  Receive Date: 20090102
  Receipt Date: 20081224
  Transmission Date: 20090719
  Serious: Yes (Other)
  Sender: FDA-Public Use
  Company Number: JP-AMGEN-US326389

PATIENT
  Age: 54 Year
  Sex: Female

DRUGS (1)
  1. ENBREL [Suspect]
     Indication: RHEUMATOID ARTHRITIS
     Dosage: UNKNOWN
     Route: 058

REACTIONS (3)
  - PYREXIA [None]
  - RASH [None]
  - VASCULITIS [None]
